FAERS Safety Report 20972805 (Version 1)
Quarter: 2022Q2

REPORT INFORMATION
  Report Type: Spontaneous
  Country: BR (occurrence: None)
  Receive Date: 20220617
  Receipt Date: 20220617
  Transmission Date: 20220721
  Serious: Yes (Other)
  Sender: FDA-Public Use
  Company Number: BR-ROCHE-3111494

PATIENT
  Age: 54 Year
  Sex: Female

DRUGS (2)
  1. XELODA [Suspect]
     Active Substance: CAPECITABINE
     Indication: Breast neoplasm
     Route: 048
  2. NAVELBINE [Suspect]
     Active Substance: VINORELBINE TARTRATE
     Indication: Breast neoplasm
     Route: 065

REACTIONS (4)
  - Weight decreased [Recovering/Resolving]
  - Decreased appetite [Unknown]
  - Constipation [Unknown]
  - Asthenia [Unknown]

NARRATIVE: CASE EVENT DATE: 20210602
